FAERS Safety Report 7283570-8 (Version None)
Quarter: 2011Q1

REPORT INFORMATION
  Report Type: 
  Country: None (occurrence: None)
  Receive Date: 20110209
  Receipt Date: 20110201
  Transmission Date: 20110831
  Serious: Yes (Other)
  Sender: FDA-Public Use
  Company Number: A0872360A

PATIENT
  Sex: Male
  Weight: 121.8 kg

DRUGS (1)
  1. AVANDIA [Suspect]
     Dosage: 8MG PER DAY
     Route: 048
     Dates: end: 20070401

REACTIONS (3)
  - INSOMNIA [None]
  - DEPRESSION [None]
  - CEREBROVASCULAR ACCIDENT [None]
